FAERS Safety Report 17241832 (Version 2)
Quarter: 2020Q1

REPORT INFORMATION
  Report Type: Spontaneous
  Country: BR (occurrence: BR)
  Receive Date: 20200107
  Receipt Date: 20200203
  Transmission Date: 20200409
  Serious: Yes (Hospitalization)
  Sender: FDA-Public Use
  Company Number: BR-PFIZER INC-2020004613

PATIENT
  Sex: Female

DRUGS (1)
  1. CHAMPIX [Suspect]
     Active Substance: VARENICLINE TARTRATE
     Indication: SMOKING CESSATION THERAPY
     Dosage: UNK
     Dates: start: 202001

REACTIONS (6)
  - Increased appetite [Unknown]
  - Drug ineffective [Unknown]
  - Malaise [Unknown]
  - Nervousness [Unknown]
  - Crying [Unknown]
  - Pulmonary oedema [Unknown]
